FAERS Safety Report 17460903 (Version 1)
Quarter: 2020Q1

REPORT INFORMATION
  Report Type: Spontaneous
  Country: DE (occurrence: DE)
  Receive Date: 20200226
  Receipt Date: 20200226
  Transmission Date: 20200409
  Serious: Yes (Other)
  Sender: FDA-Public Use
  Company Number: DE-ASTRAZENECA-2020SE08662

PATIENT
  Sex: Male
  Weight: 119 kg

DRUGS (6)
  1. FORXIGA [Suspect]
     Active Substance: DAPAGLIFLOZIN
     Indication: DIABETES MELLITUS INADEQUATE CONTROL
     Route: 048
  2. METFORMIN [Concomitant]
     Active Substance: METFORMIN HYDROCHLORIDE
     Dosage: 1000, 1-0-1
  3. BISOPROLOL [Concomitant]
     Active Substance: BISOPROLOL
     Dosage: 5, 1-0-0
  4. LERCANIDIPIN [Concomitant]
     Active Substance: LERCANIDIPINE
     Dosage: 10, 1-0-0
  5. JANUVIA [Concomitant]
     Active Substance: SITAGLIPTIN PHOSPHATE
     Dosage: 50, 1-0-0
  6. ATORVASTATIN [Concomitant]
     Active Substance: ATORVASTATIN
     Dosage: 20, 0-0-1

REACTIONS (3)
  - Nausea [Recovering/Resolving]
  - Arrhythmia [Recovered/Resolved]
  - Blood glucose increased [Recovered/Resolved]
